FAERS Safety Report 5096791-X (Version None)
Quarter: 2006Q3

REPORT INFORMATION
  Report Type: 
  Country: None (occurrence: None)
  Receive Date: 20060831
  Receipt Date: 20060821
  Transmission Date: 20061208
  Serious: Yes (Other)
  Sender: FDA-Public Use
  Company Number: 2006102667

PATIENT
  Sex: Female
  Weight: 50 kg

DRUGS (3)
  1. SULFASALAZINE [Suspect]
     Indication: DRUG USE FOR UNKNOWN INDICATION
     Dosage: ORAL
     Route: 048
     Dates: start: 20000126, end: 20000202
  2. ZINC [Concomitant]
  3. RANITIDINE [Concomitant]

REACTIONS (2)
  - INFLAMMATION [None]
  - NECK PAIN [None]
